FAERS Safety Report 9803219 (Version 2)
Quarter: 2014Q1

REPORT INFORMATION
  Report Type: Spontaneous
  Country: BR (occurrence: BR)
  Receive Date: 20140108
  Receipt Date: 20140108
  Transmission Date: 20141002
  Serious: Yes (Hospitalization, Other)
  Sender: FDA-Public Use
  Company Number: PHHY2013BR109673

PATIENT
  Age: 83 Year
  Sex: Female

DRUGS (5)
  1. FORASEQ [Suspect]
     Indication: CHRONIC OBSTRUCTIVE PULMONARY DISEASE
     Dosage: 2 DF, QD
     Route: 055
  2. FORASEQ [Suspect]
     Indication: LUNG DISORDER
     Dosage: 2 DF, BID
     Route: 055
  3. DIMORF LC [Suspect]
     Indication: BONE PAIN
     Dosage: 2 DF, QD
     Route: 048
  4. DURAGESIC [Concomitant]
     Indication: PAIN
     Dosage: UNK UKN, UNK
  5. DIOVAN AMLO [Concomitant]
     Indication: CARDIAC DISORDER
     Dosage: 1 DF, QD
     Route: 048

REACTIONS (10)
  - Fall [Recovered/Resolved]
  - Femur fracture [Recovered/Resolved]
  - Panic disorder [Recovered/Resolved]
  - Pernicious anaemia [Unknown]
  - Hiatus hernia [Not Recovered/Not Resolved]
  - Gastrooesophageal reflux disease [Not Recovered/Not Resolved]
  - Product quality issue [Unknown]
  - Device malfunction [Unknown]
  - Somnolence [Recovered/Resolved]
  - Dyspnoea [Recovered/Resolved]
